FAERS Safety Report 9659450 (Version 1)
Quarter: 2013Q4

REPORT INFORMATION
  Report Type: Spontaneous
  Country: US (occurrence: US)
  Receive Date: 20131031
  Receipt Date: 20131031
  Transmission Date: 20140711
  Serious: No
  Sender: FDA-Public Use
  Company Number: US-009507513-1310USA013575

PATIENT
  Sex: Female

DRUGS (1)
  1. OXYTROL FOR WOMEN [Suspect]
     Indication: NOCTURIA
     Dosage: 1 DF, UNKNOWN
     Route: 062
     Dates: start: 20130930

REACTIONS (3)
  - Headache [Unknown]
  - Initial insomnia [Unknown]
  - Drug ineffective [Unknown]
